FAERS Safety Report 7125747-8 (Version None)
Quarter: 2010Q4

REPORT INFORMATION
  Report Type: 
  Country: None (occurrence: None)
  Receive Date: 20101129
  Receipt Date: 20101119
  Transmission Date: 20110411
  Serious: Yes (Life-Threatening)
  Sender: FDA-Public Use
  Company Number: B0682087A

PATIENT
  Age: 93 Year
  Sex: Male

DRUGS (4)
  1. VALTREX [Suspect]
     Indication: HERPES ZOSTER
     Dosage: 3000MG PER DAY
     Route: 048
     Dates: start: 20101026, end: 20101028
  2. NIFEDIPINE [Concomitant]
     Indication: HYPERTENSION
     Dosage: 40MG PER DAY
  3. TANATRIL [Concomitant]
     Indication: HYPERTENSION
     Dosage: 5MG PER DAY
     Route: 065
  4. DOXAZOSIN MESYLATE [Concomitant]
     Indication: HYPERTENSION
     Dosage: 2MG PER DAY

REACTIONS (4)
  - ENCEPHALOPATHY [None]
  - OVERDOSE [None]
  - RENAL FAILURE ACUTE [None]
  - URINE OUTPUT DECREASED [None]
